FAERS Safety Report 20610766 (Version 7)
Quarter: 2023Q4

REPORT INFORMATION
  Report Type: Report from Study
  Country: JP (occurrence: JP)
  Receive Date: 20220318
  Receipt Date: 20231110
  Transmission Date: 20240110
  Serious: Yes (Hospitalization, Other)
  Sender: FDA-Public Use
  Company Number: JP-ASTELLAS-2022JP004488

PATIENT
  Age: 79 Year
  Sex: Male

DRUGS (9)
  1. ENFORTUMAB VEDOTIN [Suspect]
     Active Substance: ENFORTUMAB VEDOTIN
     Indication: Transitional cell carcinoma
     Dosage: 90 MG (1.25 MG/KG), ONCE WEEKLY
     Route: 041
     Dates: start: 20220118
  2. ENFORTUMAB VEDOTIN [Suspect]
     Active Substance: ENFORTUMAB VEDOTIN
     Indication: Metastases to lung
     Dosage: 90 MG (1.25 MG/KG), ONCE WEEKLY
     Route: 041
     Dates: start: 20220208, end: 20220215
  3. ENFORTUMAB VEDOTIN [Suspect]
     Active Substance: ENFORTUMAB VEDOTIN
     Indication: Metastases to bone
  4. PEMBROLIZUMAB [Concomitant]
     Active Substance: PEMBROLIZUMAB
     Indication: Transitional cell carcinoma
     Dosage: UNK UNK, UNKNOWN FREQ.
     Route: 065
     Dates: start: 20190910, end: 20211221
  5. INSULIN NOS [Concomitant]
     Active Substance: INSULIN NOS
     Indication: Hyperglycaemia
     Dosage: SCALE SHOT, THRICE DAILY
     Route: 065
     Dates: start: 20220122, end: 20220315
  6. INSULIN NOS [Concomitant]
     Active Substance: INSULIN NOS
     Indication: Condition aggravated
  7. HEPARIN SODIUM [Concomitant]
     Active Substance: HEPARIN SODIUM
     Indication: Thrombophlebitis migrans
     Dosage: 15000 UNITS, CONTINUOUS
     Route: 065
     Dates: start: 20220126, end: 20220304
  8. HEPARIN SODIUM [Concomitant]
     Active Substance: HEPARIN SODIUM
     Indication: Cerebral infarction
  9. NAPROXEN SODIUM [Concomitant]
     Active Substance: NAPROXEN SODIUM
     Indication: Product used for unknown indication
     Route: 048
     Dates: start: 20220216, end: 20220608

REACTIONS (12)
  - Tumour lysis syndrome [Unknown]
  - Thrombophlebitis migrans [Not Recovered/Not Resolved]
  - Renal impairment [Recovering/Resolving]
  - Blood uric acid increased [Unknown]
  - Blood lactate dehydrogenase increased [Unknown]
  - Hyperglycaemia [Recovered/Resolved]
  - Condition aggravated [Recovered/Resolved]
  - Diarrhoea [Recovered/Resolved]
  - Cerebral infarction [Recovered/Resolved]
  - Myelosuppression [Recovered/Resolved]
  - Hyperuricaemia [Recovered/Resolved]
  - Pyrexia [Recovered/Resolved]

NARRATIVE: CASE EVENT DATE: 20220119
